FAERS Safety Report 7438141-7 (Version None)
Quarter: 2011Q2

REPORT INFORMATION
  Report Type: 
  Country: None (occurrence: None)
  Receive Date: 20110421
  Receipt Date: 20110421
  Transmission Date: 20111010
  Serious: Yes (Hospitalization)
  Sender: FDA-Public Use
  Company Number: None

PATIENT
  Age: 91 Year
  Sex: Female

DRUGS (2)
  1. CELEXA [Suspect]
     Indication: DEPRESSION SUICIDAL
     Dosage: 10 MG ONCE DAILY PO
     Route: 048
  2. LASIX [Concomitant]

REACTIONS (3)
  - BLOOD ANTIDIURETIC HORMONE INCREASED [None]
  - INAPPROPRIATE ANTIDIURETIC HORMONE SECRETION [None]
  - BLOOD UREA DECREASED [None]
